FAERS Safety Report 16230956 (Version 1)
Quarter: 2019Q2

REPORT INFORMATION
  Report Type: Spontaneous
  Country: AT (occurrence: AT)
  Receive Date: 20190423
  Receipt Date: 20190423
  Transmission Date: 20190711
  Serious: Yes (Other)
  Sender: FDA-Public Use
  Company Number: AT-CELLTRION INC.-2019AT020572

PATIENT

DRUGS (4)
  1. RITUXIMAB (UNKNOWN) [Suspect]
     Active Substance: RITUXIMAB
     Indication: HAIRY CELL LEUKAEMIA
     Dosage: 375 MG/M2/ WEEK (4 DOSES)
     Route: 042
     Dates: start: 201107
  2. CLADRIBINE. [Suspect]
     Active Substance: CLADRIBINE
     Indication: HAIRY CELL LEUKAEMIA
     Dosage: 0.14 MG/KG, 5 DAYS (1 CYCLE)
     Route: 065
     Dates: start: 201201
  3. VEMURAFENIB. [Suspect]
     Active Substance: VEMURAFENIB
     Indication: HAIRY CELL LEUKAEMIA
     Dosage: 480 MG, QD
     Route: 065
     Dates: start: 201207, end: 201210
  4. CLADRIBINE. [Suspect]
     Active Substance: CLADRIBINE
     Dosage: 0.14 MG/KG, 5 DAYS (1 CYCLE)
     Route: 065
     Dates: start: 200211

REACTIONS (6)
  - Neutropenia [Recovering/Resolving]
  - Urosepsis [Recovering/Resolving]
  - Off label use [Unknown]
  - Septic shock [Recovering/Resolving]
  - Pneumonia [Recovering/Resolving]
  - Intentional product use issue [Unknown]
